FAERS Safety Report 13299533 (Version 1)
Quarter: 2017Q1

REPORT INFORMATION
  Report Type: Spontaneous
  Country: SI (occurrence: SI)
  Receive Date: 20170306
  Receipt Date: 20170306
  Transmission Date: 20170428
  Serious: Yes (Other)
  Sender: FDA-Public Use
  Company Number: SI-BAYER-2017-037588

PATIENT
  Age: 74 Year
  Sex: Male

DRUGS (1)
  1. STIVARGA [Suspect]
     Active Substance: REGORAFENIB
     Dosage: 120 MG, QD
     Route: 048
     Dates: start: 201606

REACTIONS (7)
  - Palmar-plantar erythrodysaesthesia syndrome [None]
  - Metastases to lung [None]
  - Metastases to bone [None]
  - Fatigue [Not Recovered/Not Resolved]
  - Blood pressure increased [Recovering/Resolving]
  - Metastases to liver [None]
  - Metastases to lymph nodes [None]

NARRATIVE: CASE EVENT DATE: 201607
